FAERS Safety Report 6956821-4 (Version None)
Quarter: 2010Q3

REPORT INFORMATION
  Report Type: 
  Country: None (occurrence: None)
  Receive Date: 20100826
  Receipt Date: 20100809
  Transmission Date: 20110219
  Serious: Yes (Other)
  Sender: FDA-Public Use
  Company Number: ACO_01794_2010

PATIENT
  Age: 41 Year
  Sex: Female

DRUGS (1)
  1. TERNELIN (TERNELIN) 3 MG (NOT SPECIFIED) [Suspect]
     Indication: CERVICOBRACHIAL SYNDROME
     Dosage: 3 MG QD ORAL
     Route: 048
     Dates: start: 20100526, end: 20100701

REACTIONS (2)
  - URINARY RETENTION [None]
  - UTERINE OPERATION [None]
